FAERS Safety Report 25675790 (Version 1)
Quarter: 2025Q3

REPORT INFORMATION
  Report Type: Spontaneous
  Country: US (occurrence: US)
  Receive Date: 20250813
  Receipt Date: 20250813
  Transmission Date: 20251020
  Serious: Yes (Other)
  Sender: SANOFI AVENTIS
  Company Number: US-SA-2025SA234233

PATIENT
  Sex: Female

DRUGS (1)
  1. DUPIXENT [Suspect]
     Active Substance: DUPILUMAB
     Indication: Eczema
     Dates: start: 2020, end: 2023

REACTIONS (11)
  - Lyme disease [Unknown]
  - Condition aggravated [Unknown]
  - Fungal infection [Unknown]
  - Condition aggravated [Unknown]
  - Bacterial infection [Unknown]
  - Condition aggravated [Unknown]
  - Epstein-Barr virus infection [Unknown]
  - Condition aggravated [Unknown]
  - Infection parasitic [Unknown]
  - Condition aggravated [Unknown]
  - Immune system disorder [Unknown]
